FAERS Safety Report 5107479-0 (Version None)
Quarter: 2006Q3

REPORT INFORMATION
  Report Type: 
  Country: None (occurrence: None)
  Receive Date: 20060913
  Receipt Date: 20060913
  Transmission Date: 20061208
  Serious: Yes (Disabling)
  Sender: FDA-Public Use
  Company Number: None

PATIENT
  Sex: Female
  Weight: 56.246 kg

DRUGS (2)
  1. ONXOL 6 MG /ML IVAX [Suspect]
     Indication: BREAST CANCER
     Dosage: 80 MG/M2 138 MG WEEKLY IVPB
     Route: 040
     Dates: start: 20050923, end: 20051208
  2. HERCEPTIN [Suspect]
     Dosage: SEE IMAGE
     Route: 040
     Dates: start: 20050923, end: 20060525

REACTIONS (5)
  - ABASIA [None]
  - ASTHENIA [None]
  - DYSAESTHESIA [None]
  - HYPOAESTHESIA [None]
  - PARAESTHESIA [None]
